FAERS Safety Report 23029323 (Version 2)
Quarter: 2023Q4

REPORT INFORMATION
  Report Type: Spontaneous
  Country: GB (occurrence: GB)
  Receive Date: 20231004
  Receipt Date: 20231102
  Transmission Date: 20240110
  Serious: Yes (Other)
  Sender: FDA-Public Use
  Company Number: GB-CHIESI-2023CHF04156

PATIENT
  Sex: Female

DRUGS (20)
  1. ACYCLOVIR [Suspect]
     Active Substance: ACYCLOVIR
     Indication: Product used for unknown indication
     Dosage: AT AN UNSPECIFIED DOSE AND FREQUENCY (DOSAGE TEXT: UNK; ;)
     Route: 065
     Dates: start: 20230720
  2. ALLOPURINOL [Suspect]
     Active Substance: ALLOPURINOL
     Indication: Product used for unknown indication
     Dosage: AT AN UNSPECIFIED DOSE AND FREQUENCY (DOSAGE TEXT: UNK; ;)
     Route: 065
     Dates: start: 20230721
  3. DOMPERIDONE [Suspect]
     Active Substance: DOMPERIDONE
     Indication: Product used for unknown indication
     Dosage: AT AN UNSPECIFIED DOSE AND FREQUENCY (DOSAGE TEXT: UNK;)
     Route: 065
  4. FEXOFENADINE [Suspect]
     Active Substance: FEXOFENADINE HYDROCHLORIDE
     Indication: Product used for unknown indication
     Dosage: AT AN UNSPECIFIED DOSE AND FREQUENCY (DOSAGE TEXT: UNK;)
     Route: 065
  5. MAGROLIMAB [Suspect]
     Active Substance: MAGROLIMAB
     Indication: Acute myeloid leukaemia
     Dosage: 1 MILLIGRAMS/KILOGRAM AT AN UNSPECIFIED FREQUENCY (DOSAGE TEXT: 1 MILLIGRAM/KILOGRAM;)
     Route: 042
     Dates: start: 20230723, end: 20230723
  6. MAGROLIMAB [Suspect]
     Active Substance: MAGROLIMAB
     Dosage: 70 MILLIGRAMS AT AN UNSPECIFIED FREQUENCY (DOSAGE TEXT: 70 MILLIGRAM;)
     Route: 042
  7. MAGROLIMAB [Suspect]
     Active Substance: MAGROLIMAB
     Dosage: 70 MILLIGRAMS AT AN UNSPECIFIED FREQUENCY (DOSAGE TEXT: 70 MILLIGRAM;)
     Route: 042
  8. AZACITIDINE [Suspect]
     Active Substance: AZACITIDINE
     Indication: Acute myeloid leukaemia
     Dosage: AT AN UNSPECIFIED DOSE ONEC DAILY (DOSAGE TEXT: UNK, QD)
     Route: 058
     Dates: start: 20230720
  9. AZACITIDINE [Suspect]
     Active Substance: AZACITIDINE
     Dosage: 140 MILLIGRAMS ONCE DAILY (DOSAGE TEXT: 140 MG, QD)
     Route: 058
     Dates: start: 20230720
  10. AZACITIDINE [Suspect]
     Active Substance: AZACITIDINE
     Dosage: 140 MILLIGRAMS, ONCE DAILY (DOSAGE TEXT: 140 MILLIGRAM, QD) (DOSAGE FORM: INJECTION)
     Route: 058
     Dates: start: 20230720
  11. BECLOMETHASONE\FORMOTEROL [Suspect]
     Active Substance: BECLOMETHASONE\FORMOTEROL
     Indication: Product used for unknown indication
     Dosage: AT AN UNSPECIFIED DOSE AND FREQUENCY (DOSAGE TEXT: UNK;;)
     Route: 065
  12. FOLIC ACID [Suspect]
     Active Substance: FOLIC ACID
     Indication: Product used for unknown indication
     Dosage: AT AN UNSPECIFIED DOSE AND FREQUENCY (DOSAGE TEXT: UNK;;)
     Route: 065
  13. CALCIUM [Suspect]
     Active Substance: CALCIUM
     Indication: Product used for unknown indication
     Dosage: AT AN UNSPECIFIED DOSE AND FREQUENCY (DOSAGE TEXT: UNK;)
     Route: 065
  14. POLYETHYLENE GLYCOLS [Concomitant]
     Active Substance: POLYETHYLENE GLYCOLS
     Indication: Product used for unknown indication
     Dosage: (DOSAGE TEXT: UNSPECIFIED DOSE AND FREQUENCY)
     Route: 065
     Dates: start: 20230723
  15. MONTELUKAST [Concomitant]
     Active Substance: MONTELUKAST SODIUM
     Indication: Product used for unknown indication
     Dosage: AT AN UNSPECIFIED DOSE AND FREQUENCY (DOSAGE TEXT: UNK;);
     Dates: start: 20230720
  16. ENOXAPARIN [Concomitant]
     Active Substance: ENOXAPARIN
     Indication: Product used for unknown indication
     Dosage: AT AN UNSPECIFIED DOSE AND FREQUENCY (DOSAGE TEXT: UNK;;)
     Route: 065
     Dates: start: 20230720
  17. CALCIUM CARBONATE\CHOLECALCIFEROL [Concomitant]
     Active Substance: CALCIUM CARBONATE\CHOLECALCIFEROL
     Indication: Product used for unknown indication
     Dosage: AT AN UNSPECIFIED DOSE AND FREQUENCY (DOSAGE TEXT: UNK; ;)
     Dates: start: 20230720
  18. ACETAMINOPHEN [Concomitant]
     Active Substance: ACETAMINOPHEN
     Indication: Product used for unknown indication
     Dosage: AT AN UNSPECIFIED DOSE AND FREQUENCY (DOSAGE TEXT: UNK; ;)
     Dates: start: 20230720
  19. ACETAMINOPHEN [Concomitant]
     Active Substance: ACETAMINOPHEN
     Dosage: (DOSAGE TEXT: UNSPECIFIED DOSE AND FREQUENCY)
  20. OMEPRAZOLE [Concomitant]
     Active Substance: OMEPRAZOLE
     Indication: Product used for unknown indication
     Dosage: AT AN UNSPECIFIED DOSE AND FREQUENCY (DOSAGE TEXT: UNK;;)
     Dates: start: 20230720

REACTIONS (1)
  - Hallucination [Recovered/Resolved]

NARRATIVE: CASE EVENT DATE: 20230723
